FAERS Safety Report 4510041-1 (Version None)
Quarter: 2004Q4

REPORT INFORMATION
  Report Type: 
  Country: None (occurrence: None)
  Receive Date: 20041124
  Receipt Date: 20041119
  Transmission Date: 20050328
  Serious: Yes (Disabling)
  Sender: FDA-Public Use
  Company Number: PHRM2004FR03390

PATIENT
  Age: 68 Year
  Sex: Female
  Weight: 60 kg

DRUGS (3)
  1. FEMARA [Suspect]
     Indication: BREAST CANCER FEMALE
     Dosage: 2.5 MG, QD
     Route: 048
     Dates: end: 20041025
  2. TRANDATE [Suspect]
     Indication: ESSENTIAL HYPERTENSION
     Dosage: 300 MG DAILY
     Route: 048
  3. ALDACTAZINE [Suspect]
     Indication: ESSENTIAL HYPERTENSION
     Dosage: 0.5 DF DAILY
     Route: 048

REACTIONS (4)
  - BLOOD CREATINE PHOSPHOKINASE INCREASED [None]
  - MOTOR DYSFUNCTION [None]
  - MUSCLE INJURY [None]
  - MYOPATHY [None]
